FAERS Safety Report 11621547 (Version 1)
Quarter: 2015Q4

REPORT INFORMATION
  Report Type: Other
  Country: US (occurrence: US)
  Receive Date: 20151013
  Receipt Date: 20151013
  Transmission Date: 20160304
  Serious: Yes (Life-Threatening, Hospitalization)
  Sender: FDA-Public Use
  Company Number: US-JUBILANT GENERICS LIMITED-1042839

PATIENT
  Age: 32 Year
  Sex: Male

DRUGS (2)
  1. OLANZAPINE. [Suspect]
     Active Substance: OLANZAPINE
  2. NALOXONE [Concomitant]
     Active Substance: NALOXONE

REACTIONS (4)
  - Bradycardia [Recovered/Resolved]
  - Spasmodic dysphonia [Recovered/Resolved]
  - Hypoxia [Recovered/Resolved]
  - Unresponsive to stimuli [Recovered/Resolved]

NARRATIVE: CASE EVENT DATE: 20150928
